FAERS Safety Report 10881250 (Version 2)
Quarter: 2015Q1

REPORT INFORMATION
  Report Type: Spontaneous
  Country: US (occurrence: US)
  Receive Date: 20150303
  Receipt Date: 20150309
  Transmission Date: 20150721
  Serious: No
  Sender: FDA-Public Use
  Company Number: US-PFIZER INC-2015072546

PATIENT
  Sex: Female

DRUGS (1)
  1. LYRICA [Suspect]
     Active Substance: PREGABALIN
     Indication: NEUROPATHY PERIPHERAL
     Dosage: UNK

REACTIONS (10)
  - Local swelling [Unknown]
  - Erythema [Unknown]
  - Abdominal distension [Unknown]
  - Hypersensitivity [Unknown]
  - White blood cell count increased [Recovering/Resolving]
  - Face oedema [Unknown]
  - Abdominal discomfort [Unknown]
  - Condition aggravated [Unknown]
  - Flushing [Unknown]
  - Dizziness [Unknown]

NARRATIVE: CASE EVENT DATE: 20150212
